FAERS Safety Report 24868164 (Version 1)
Quarter: 2025Q1

REPORT INFORMATION
  Report Type: Spontaneous
  Country: PT (occurrence: PT)
  Receive Date: 20250121
  Receipt Date: 20250121
  Transmission Date: 20250409
  Serious: Yes (Hospitalization, Other)
  Sender: JOHNSON AND JOHNSON
  Company Number: PT-CHEPLA-2025000449

PATIENT
  Age: 56 Year
  Sex: Female

DRUGS (13)
  1. INVEGA [Suspect]
     Active Substance: PALIPERIDONE
     Indication: Schizophrenia
     Route: 048
  2. INVEGA [Suspect]
     Active Substance: PALIPERIDONE
     Route: 048
  3. OLANZAPINE [Suspect]
     Active Substance: OLANZAPINE
     Indication: Schizophrenia
  4. OLANZAPINE [Suspect]
     Active Substance: OLANZAPINE
     Dosage: INCREASED TO 20 MG
  5. QUETIAPINE [Suspect]
     Active Substance: QUETIAPINE
     Indication: Schizophrenia
  6. QUETIAPINE [Suspect]
     Active Substance: QUETIAPINE
  7. CLONAZEPAM [Suspect]
     Active Substance: CLONAZEPAM
     Indication: Schizophrenia
  8. VALPROIC ACID [Suspect]
     Active Substance: VALPROIC ACID
     Indication: Schizophrenia
  9. LORAZEPAM [Suspect]
     Active Substance: LORAZEPAM
     Indication: Schizophrenia
  10. TRAZODONE [Suspect]
     Active Substance: TRAZODONE HYDROCHLORIDE
     Indication: Schizophrenia
  11. TRAZODONE [Suspect]
     Active Substance: TRAZODONE HYDROCHLORIDE
  12. OXAZEPAM [Suspect]
     Active Substance: OXAZEPAM
     Indication: Schizophrenia
  13. CHLORPROMAZINE [Suspect]
     Active Substance: CHLORPROMAZINE
     Indication: Product used for unknown indication

REACTIONS (7)
  - Psychomotor hyperactivity [Recovered/Resolved]
  - Rhabdomyolysis [Recovered/Resolved]
  - Hepatic cytolysis [Recovered/Resolved]
  - Trichoglossia [Recovering/Resolving]
  - Constipation [Unknown]
  - Drug ineffective [Unknown]
  - Off label use [Not Recovered/Not Resolved]
